FAERS Safety Report 9846724 (Version 2)
Quarter: 2014Q1

REPORT INFORMATION
  Report Type: Spontaneous
  Country: US (occurrence: US)
  Receive Date: 20140127
  Receipt Date: 20140127
  Transmission Date: 20141002
  Serious: No
  Sender: FDA-Public Use
  Company Number: US-GILEAD-2011-0047455

PATIENT
  Sex: Male

DRUGS (2)
  1. TRUVADA [Suspect]
     Indication: HIV INFECTION
     Dosage: UNK
     Dates: end: 201107
  2. COMPLERA [Suspect]
     Indication: HIV INFECTION

REACTIONS (12)
  - Mood swings [Unknown]
  - Irritability [Unknown]
  - Pruritus [Unknown]
  - Throat irritation [Unknown]
  - Anxiety [Unknown]
  - Renal pain [Unknown]
  - Diabetes mellitus [Unknown]
  - Hypothyroidism [Unknown]
  - Hypertension [Unknown]
  - Insomnia [Unknown]
  - Abnormal dreams [Unknown]
  - Dyspnoea [Unknown]
